FAERS Safety Report 9325962 (Version 1)
Quarter: 2013Q2

REPORT INFORMATION
  Report Type: Spontaneous
  Country: US (occurrence: US)
  Receive Date: 20130604
  Receipt Date: 20130604
  Transmission Date: 20140414
  Serious: No
  Sender: FDA-Public Use
  Company Number: US-BAYER-2013-064247

PATIENT
  Age: 53 Year
  Sex: Female

DRUGS (4)
  1. CLIMARA [Suspect]
     Dosage: DAILY DOSE .05 MG
     Route: 062
     Dates: start: 20130513
  2. ESTRADIOL [Concomitant]
     Dosage: DAILY DOSE .05 MG
     Dates: start: 20130325, end: 201305
  3. CITRACAL [Concomitant]
     Dosage: UNK
     Dates: start: 2002
  4. LEVOXYL [Concomitant]
     Indication: HYPOTHYROIDISM
     Dosage: DAILY DOSE 125 ?G
     Dates: start: 2004

REACTIONS (6)
  - Skin irritation [Recovered/Resolved]
  - Pruritus [Recovered/Resolved]
  - Insomnia [Not Recovered/Not Resolved]
  - Tearfulness [Not Recovered/Not Resolved]
  - Hot flush [Not Recovered/Not Resolved]
  - Drug ineffective [None]
